FAERS Safety Report 25640825 (Version 4)
Quarter: 2025Q3

REPORT INFORMATION
  Report Type: Spontaneous
  Country: US (occurrence: US)
  Receive Date: 20250804
  Receipt Date: 20250917
  Transmission Date: 20251021
  Serious: Yes (Death, Hospitalization, Other)
  Sender: MERCK SHARP & DOHME LLC
  Company Number: US-009507513-2313623

PATIENT
  Age: 84 Year
  Sex: Male

DRUGS (1)
  1. KEYTRUDA [Suspect]
     Active Substance: PEMBROLIZUMAB
     Indication: Lung neoplasm malignant

REACTIONS (10)
  - Death [Fatal]
  - Hospice care [Unknown]
  - Hepatitis [Recovering/Resolving]
  - Cardiac failure congestive [Not Recovered/Not Resolved]
  - Nephritis [Recovering/Resolving]
  - Dehydration [Unknown]
  - Cellulitis [Unknown]
  - Blood pressure abnormal [Unknown]
  - Pulmonary oedema [Unknown]
  - Renal failure [Unknown]

NARRATIVE: CASE EVENT DATE: 20250101
